FAERS Safety Report 17858479 (Version 2)
Quarter: 2020Q2

REPORT INFORMATION
  Report Type: Report from Study
  Country: None (occurrence: US)
  Receive Date: 20200604
  Receipt Date: 20200605
  Transmission Date: 20200714
  Serious: No
  Sender: FDA-Public Use
  Company Number: US-US WORLDMEDS, LLC-USW201909-001723

PATIENT
  Sex: Male

DRUGS (10)
  1. RANITIDINE HYDROCHLORIDE. [Concomitant]
     Active Substance: RANITIDINE HYDROCHLORIDE
  2. GLIMEPIRIDE. [Concomitant]
     Active Substance: GLIMEPIRIDE
  3. CARBIDOPA-LEVODOPA [Concomitant]
     Active Substance: CARBIDOPA\LEVODOPA
  4. FISH OIL [Concomitant]
     Active Substance: FISH OIL
  5. AMITIZA [Concomitant]
     Active Substance: LUBIPROSTONE
  6. PROBIOTIC [Concomitant]
     Active Substance: PROBIOTICS NOS
     Dosage: 100B CELL CAPSULE
  7. APOKYN [Suspect]
     Active Substance: APOMORPHINE HYDROCHLORIDE
     Indication: PARKINSON^S DISEASE
  8. LISINOPRIL. [Concomitant]
     Active Substance: LISINOPRIL
  9. LACTULOSE. [Concomitant]
     Active Substance: LACTULOSE
  10. GABAPENTIN. [Concomitant]
     Active Substance: GABAPENTIN

REACTIONS (2)
  - Blood pressure decreased [Unknown]
  - Somnolence [Unknown]
